FAERS Safety Report 9308564 (Version 1)
Quarter: 2013Q2

REPORT INFORMATION
  Report Type: Spontaneous
  Country: GB (occurrence: CU)
  Receive Date: 20130524
  Receipt Date: 20130524
  Transmission Date: 20140414
  Serious: Yes (Other)
  Sender: FDA-Public Use
  Company Number: GB-JNJFOC-20130511028

PATIENT
  Age: 47 Year
  Sex: Female

DRUGS (2)
  1. IMODIUM PLUS [Suspect]
     Route: 048
  2. IMODIUM PLUS [Suspect]
     Indication: ABDOMINAL DISCOMFORT
     Dosage: AT 08:30 AM; ON FRIDAY
     Route: 048
     Dates: start: 20130426, end: 20130426

REACTIONS (3)
  - Swelling face [Unknown]
  - Hot flush [Unknown]
  - Sensory disturbance [Unknown]
